FAERS Safety Report 7009254-9 (Version None)
Quarter: 2010Q3

REPORT INFORMATION
  Report Type: 
  Country: None (occurrence: None)
  Receive Date: 20100923
  Receipt Date: 20100914
  Transmission Date: 20110219
  Serious: Yes (Hospitalization)
  Sender: FDA-Public Use
  Company Number: BR-ABBOTT-10P-020-0631406-00

PATIENT
  Sex: Female
  Weight: 95 kg

DRUGS (10)
  1. HUMIRA [Suspect]
     Indication: RHEUMATOID ARTHRITIS
     Route: 058
     Dates: start: 20060630
  2. UNKNOWN DRUG [Concomitant]
     Indication: ANTICOAGULANT THERAPY
     Dosage: 2 APPLICATIONS PER DAY
     Route: 058
     Dates: end: 20100101
  3. PREDNISONE [Concomitant]
     Indication: RHEUMATOID ARTHRITIS
     Route: 048
  4. METHOTREXATE [Concomitant]
     Indication: RHEUMATOID ARTHRITIS
     Route: 048
     Dates: end: 20091001
  5. METHOTREXATE [Concomitant]
     Indication: PAIN
     Dosage: 2-3 TABLETS PER WEEK
     Dates: start: 20091001, end: 20100201
  6. HYDROCHLOROTHIAZIDE [Concomitant]
     Indication: RHEUMATOID ARTHRITIS
     Route: 048
  7. SPIRONOLACTONE [Concomitant]
     Indication: HYPERTENSION
     Route: 048
  8. CARVEDILOL [Concomitant]
     Indication: PRODUCT USED FOR UNKNOWN INDICATION
     Route: 048
  9. ATENOLOL [Concomitant]
     Indication: RHEUMATOID ARTHRITIS
     Route: 048
  10. TRAMADOL/CYCLOBENZAPRINE [Concomitant]
     Indication: RHEUMATOID ARTHRITIS
     Route: 048
     Dates: start: 20100308

REACTIONS (9)
  - ANAEMIA [None]
  - ARTHRALGIA [None]
  - BLOOD PRESSURE ABNORMAL [None]
  - BONE PAIN [None]
  - GENERALISED OEDEMA [None]
  - HAEMATOMA [None]
  - PNEUMONIA [None]
  - PYREXIA [None]
  - RENAL IMPAIRMENT [None]
